FAERS Safety Report 9176755 (Version 1)
Quarter: 2013Q1

REPORT INFORMATION
  Report Type: Spontaneous
  Country: US (occurrence: None)
  Receive Date: 20130320
  Receipt Date: 20130320
  Transmission Date: 20140127
  Serious: No
  Sender: FDA-Public Use
  Company Number: None

PATIENT
  Age: 65 Year
  Sex: Male

DRUGS (1)
  1. CLINDAMYCIN [Suspect]
     Dates: start: 20130303, end: 20130308

REACTIONS (4)
  - Chest pain [None]
  - Chest pain [None]
  - Abdominal pain upper [None]
  - Dysgeusia [None]
